FAERS Safety Report 9996507 (Version 2)
Quarter: 2014Q1

REPORT INFORMATION
  Report Type: Report from Study
  Country: US (occurrence: US)
  Receive Date: 20140311
  Receipt Date: 20140314
  Transmission Date: 20141002
  Serious: Yes (Other)
  Sender: FDA-Public Use
  Company Number: US-TEVA-467816USA

PATIENT
  Age: 18 Year
  Sex: Female

DRUGS (3)
  1. CLARAVIS [Suspect]
     Dosage: 10 MILLIGRAM DAILY;
     Dates: start: 20120604
  2. DEPO-PROVERA [Concomitant]
  3. ANTIBIOTICS [Concomitant]
     Indication: ACNE

REACTIONS (1)
  - Unintended pregnancy [Unknown]
